FAERS Safety Report 22232264 (Version 2)
Quarter: 2023Q2

REPORT INFORMATION
  Report Type: Report from Study
  Country: CA (occurrence: CA)
  Receive Date: 20230420
  Receipt Date: 20230426
  Transmission Date: 20230722
  Serious: Yes (Hospitalization)
  Sender: FDA-Public Use
  Company Number: CA-SAMSUNG BIOEPIS-SB-2023-10283

PATIENT
  Age: 73 Year
  Sex: Male

DRUGS (3)
  1. HADLIMA [Suspect]
     Active Substance: ADALIMUMAB-BWWD
     Indication: Rheumatoid arthritis
     Dosage: 40 MG/0.8 ML;
     Route: 065
     Dates: start: 20220622
  2. HADLIMA [Suspect]
     Active Substance: ADALIMUMAB-BWWD
     Dosage: UNKNOWN
     Route: 065
     Dates: start: 202302
  3. METHOTREXATE [Concomitant]
     Active Substance: METHOTREXATE
     Indication: Product used for unknown indication
     Dosage: UNKNOWN
     Route: 065

REACTIONS (9)
  - White blood cell count abnormal [Unknown]
  - Back injury [Unknown]
  - Appendicitis perforated [Recovered/Resolved]
  - Sepsis [Recovered/Resolved]
  - Emotional disorder [Not Recovered/Not Resolved]
  - Decubitus ulcer [Not Recovered/Not Resolved]
  - Injection site mass [Recovered/Resolved]
  - Injection site indentation [Recovered/Resolved]
  - Wheelchair user [Not Recovered/Not Resolved]
